FAERS Safety Report 10446254 (Version 1)
Quarter: 2014Q3

REPORT INFORMATION
  Report Type: Spontaneous
  Country: US (occurrence: US)
  Receive Date: 20140911
  Receipt Date: 20140911
  Transmission Date: 20150326
  Serious: Yes (Other)
  Sender: FDA-Public Use
  Company Number: US-ROCHE-1457891

PATIENT
  Sex: Male

DRUGS (1)
  1. XOLAIR [Suspect]
     Active Substance: OMALIZUMAB
     Indication: PRODUCT USED FOR UNKNOWN INDICATION
     Dosage: VIAL
     Route: 058
     Dates: start: 20140819

REACTIONS (13)
  - Hypoaesthesia [Unknown]
  - Myalgia [Unknown]
  - Musculoskeletal pain [Unknown]
  - Blood cholesterol abnormal [Unknown]
  - Pain in extremity [Unknown]
  - Sensory disturbance [Unknown]
  - Nervous system disorder [Unknown]
  - Hypokinesia [Unknown]
  - Arthralgia [Unknown]
  - Paraesthesia [Unknown]
  - Muscle spasms [Unknown]
  - Asthenia [Unknown]
  - Pain [Unknown]
